FAERS Safety Report 6420623-8 (Version None)
Quarter: 2009Q4

REPORT INFORMATION
  Report Type: 
  Country: None (occurrence: None)
  Receive Date: 20091027
  Receipt Date: 20091016
  Transmission Date: 20100525
  Serious: Yes (Hospitalization)
  Sender: FDA-Public Use
  Company Number: 231995J09USA

PATIENT
  Age: 68 Year
  Sex: Female

DRUGS (5)
  1. REBIF [Suspect]
     Indication: MULTIPLE SCLEROSIS
     Dosage: 44 MCG, 3 IN 1 WEEKS, SUBCUTANEOUS
     Route: 058
     Dates: start: 20050609
  2. MULTI-VITAMINS [Concomitant]
  3. UNSPECIFIED  ALLERGY MEDICATION (ALLERGY MEDICATION) [Concomitant]
  4. UNSPECIFIED  HIGH CHOLESTEROL MEDICATION (CHOLESTEROL AND TRIGLYCERIDE [Concomitant]
  5. ADVIL [Concomitant]

REACTIONS (1)
  - SYNCOPE [None]
